FAERS Safety Report 19668515 (Version 1)
Quarter: 2021Q3

REPORT INFORMATION
  Report Type: Spontaneous
  Country: US (occurrence: US)
  Receive Date: 20210806
  Receipt Date: 20210806
  Transmission Date: 20211014
  Serious: Yes (Other)
  Sender: FDA-Public Use
  Company Number: US-PFIZER INC-202100960744

PATIENT
  Age: 64 Year
  Sex: Female

DRUGS (1)
  1. XELJANZ [Suspect]
     Active Substance: TOFACITINIB CITRATE
     Indication: RHEUMATOID ARTHRITIS
     Dosage: 10 MG, 1X/DAY

REACTIONS (7)
  - Nausea [Unknown]
  - Crohn^s disease [Unknown]
  - Dyspnoea [Unknown]
  - Immune system disorder [Unknown]
  - Nasal congestion [Unknown]
  - Colitis ulcerative [Unknown]
  - Illness [Unknown]
